FAERS Safety Report 9474864 (Version 1)
Quarter: 2013Q3

REPORT INFORMATION
  Report Type: Spontaneous
  Country: DE (occurrence: DE)
  Receive Date: 20130823
  Receipt Date: 20130823
  Transmission Date: 20140515
  Serious: Yes (Hospitalization, Other)
  Sender: FDA-Public Use
  Company Number: DE-ASTRAZENECA-2013SE63660

PATIENT
  Age: 5 Day
  Sex: Female
  Weight: 3.4 kg

DRUGS (2)
  1. BELOC-ZOK MITE [Suspect]
     Indication: HYPERTENSION
     Route: 064
  2. FOLIC ACID [Suspect]
     Indication: PROPHYLAXIS OF NEURAL TUBE DEFECT
     Route: 064

REACTIONS (2)
  - Convulsion neonatal [Recovered/Resolved]
  - Apnoea neonatal [Recovered/Resolved]
